FAERS Safety Report 11824891 (Version 1)
Quarter: 2015Q4

REPORT INFORMATION
  Report Type: Spontaneous
  Country: JP (occurrence: JP)
  Receive Date: 20151210
  Receipt Date: 20151210
  Transmission Date: 20160305
  Serious: Yes (Hospitalization, Other)
  Sender: FDA-Public Use
  Company Number: JP-ABBVIE-15K-087-1514143-00

PATIENT
  Sex: Female

DRUGS (1)
  1. HUMIRA [Suspect]
     Active Substance: ADALIMUMAB
     Indication: RHEUMATOID ARTHRITIS
     Route: 058

REACTIONS (11)
  - Immunosuppression [Unknown]
  - Anxiety [Unknown]
  - Fatigue [Unknown]
  - Impaired healing [Unknown]
  - Osteoporosis [Unknown]
  - Eczema [Unknown]
  - Musculoskeletal stiffness [Unknown]
  - Salivary gland adenoma [Unknown]
  - Pneumonia [Unknown]
  - Anaesthetic complication [Unknown]
  - Alopecia [Unknown]
